FAERS Safety Report 5542781-X (Version None)
Quarter: 2007Q4

REPORT INFORMATION
  Report Type: 
  Country: None (occurrence: None)
  Receive Date: 20071210
  Receipt Date: 20071130
  Transmission Date: 20080405
  Serious: Yes (Other)
  Sender: FDA-Public Use
  Company Number: US-PFIZER INC-2007076564

PATIENT
  Sex: Male
  Weight: 111.1 kg

DRUGS (5)
  1. VIAGRA [Suspect]
     Indication: ERECTILE DYSFUNCTION
     Dates: start: 20000201, end: 20040825
  2. ZESTRIL [Concomitant]
     Indication: HYPERTENSION
  3. PRAVACHOL [Concomitant]
     Indication: BLOOD CHOLESTEROL INCREASED
  4. ACETYLSALICYLIC ACID SRT [Concomitant]
  5. VITAMINS [Concomitant]

REACTIONS (2)
  - BLINDNESS [None]
  - OPTIC ISCHAEMIC NEUROPATHY [None]
